FAERS Safety Report 17522734 (Version 2)
Quarter: 2022Q1

REPORT INFORMATION
  Report Type: Report from Study
  Country: US (occurrence: US)
  Receive Date: 20200311
  Receipt Date: 20220113
  Transmission Date: 20220423
  Serious: No
  Sender: FDA-Public Use
  Company Number: US-NOVARTISTESTPH-NVSC2020US068507

PATIENT
  Sex: Female

DRUGS (1)
  1. MYFORTIC [Suspect]
     Active Substance: MYCOPHENOLATE SODIUM
     Indication: Product used for unknown indication
     Route: 065

REACTIONS (5)
  - Illness [Unknown]
  - Lethargy [Unknown]
  - Product dose omission issue [Unknown]
  - Eye infection [Unknown]
  - Wrist fracture [Unknown]
